FAERS Safety Report 8212729-8 (Version None)
Quarter: 2012Q1

REPORT INFORMATION
  Report Type: 
  Country: None (occurrence: None)
  Receive Date: 20120315
  Receipt Date: 20120302
  Transmission Date: 20120608
  Serious: Yes (Congenital Anomaly)
  Sender: FDA-Public Use
  Company Number: IT-MERCK-1203ITA00007B1

PATIENT
  Age: 0 Day

DRUGS (5)
  1. TENOFOVIR [Concomitant]
     Route: 065
     Dates: end: 20111001
  2. [COMPOSITION UNSPECIFIED] [Concomitant]
     Route: 065
     Dates: start: 20120101
  3. LOPINAVIR [Concomitant]
     Route: 065
     Dates: start: 20120101, end: 20120201
  4. ATAZANAVIR [Concomitant]
     Route: 065
     Dates: end: 20111001
  5. ISENTRESS [Suspect]
     Route: 065
     Dates: start: 20120201

REACTIONS (2)
  - TRISOMY 21 [None]
  - MATERNAL EXPOSURE DURING PREGNANCY [None]
